FAERS Safety Report 21328529 (Version 2)
Quarter: 2023Q1

REPORT INFORMATION
  Report Type: Spontaneous
  Country: US (occurrence: US)
  Receive Date: 20220913
  Receipt Date: 20230327
  Transmission Date: 20230418
  Serious: No
  Sender: FDA-Public Use
  Company Number: US-BRISTOL-MYERS SQUIBB COMPANY-2022-105183

PATIENT
  Age: 79 Year
  Sex: Female

DRUGS (1)
  1. POMALYST [Suspect]
     Active Substance: POMALIDOMIDE
     Indication: Plasma cell myeloma
     Dosage: FREQUENCY: 1 CAPSULE EVERY 3 DAYS EVERY 28 DAY CYCLE
     Route: 048
     Dates: start: 20220728

REACTIONS (3)
  - Bronchitis [Unknown]
  - Off label use [Unknown]
  - Headache [Unknown]
